FAERS Safety Report 19349266 (Version 1)
Quarter: 2021Q2

REPORT INFORMATION
  Report Type: Spontaneous
  Country: US (occurrence: US)
  Receive Date: 20210529
  Receipt Date: 20210529
  Transmission Date: 20210717
  Serious: Yes (Other)
  Sender: FDA-Public Use
  Company Number: None

PATIENT
  Age: 66 Year
  Sex: Female
  Weight: 78.75 kg

DRUGS (9)
  1. ARMOUR THYROID [Suspect]
     Active Substance: THYROID, PORCINE
     Indication: HYPOTHYROIDISM
     Dosage: ?          QUANTITY:1 TABLET(S);?
     Route: 048
     Dates: start: 20210525, end: 20210526
  2. PROPRANOLOL [Concomitant]
     Active Substance: PROPRANOLOL HYDROCHLORIDE
  3. BIEST E2, E3 4MG/GM CREAM [Concomitant]
  4. TESTOSTERONE 4 MG/GM 0.25ML CREAM [Concomitant]
  5. TIROSINT [Concomitant]
     Active Substance: LEVOTHYROXINE SODIUM
  6. MAGNESIUM BUFFERED CHELATE 300MG [Concomitant]
  7. VITAMIN D SUPREME 5,000 IU [Concomitant]
  8. VITAMIN C LOW DOSE ASPIRIN [Concomitant]
  9. PROGETERONE 60 G/GM 1/2 GRAM CREAM [Concomitant]

REACTIONS (4)
  - Blood pressure increased [None]
  - Ear discomfort [None]
  - Vertigo [None]
  - Headache [None]

NARRATIVE: CASE EVENT DATE: 20210525
